FAERS Safety Report 25704033 (Version 1)
Quarter: 2025Q3

REPORT INFORMATION
  Report Type: Spontaneous
  Country: CN (occurrence: CN)
  Receive Date: 20250820
  Receipt Date: 20250820
  Transmission Date: 20251020
  Serious: Yes (Hospitalization, Other)
  Sender: SANOFI AVENTIS
  Company Number: CN-SA-2025SA240351

PATIENT
  Age: 84 Year
  Sex: Female
  Weight: 50 kg

DRUGS (5)
  1. DUPILUMAB [Suspect]
     Active Substance: DUPILUMAB
     Indication: Dermatitis atopic
     Route: 058
     Dates: start: 20250721, end: 20250721
  2. ACARBOSE [Concomitant]
     Active Substance: ACARBOSE
     Indication: Blood glucose increased
     Dosage: 50 MG, BID (50 MG IN THE MORNING AND 50 MG IN THE EVENING)
     Route: 048
     Dates: start: 20250730
  3. DAPAGLIFLOZIN [Concomitant]
     Active Substance: DAPAGLIFLOZIN
     Indication: Blood glucose increased
     Dates: start: 20250730
  4. INSULIN ASPART\INSULIN DEGLUDEC [Concomitant]
     Active Substance: INSULIN ASPART\INSULIN DEGLUDEC
     Indication: Blood glucose increased
     Route: 058
     Dates: start: 20250730
  5. CRISABOROLE [Concomitant]
     Active Substance: CRISABOROLE
     Indication: Dermatitis atopic
     Dates: start: 2025

REACTIONS (13)
  - Rash [Recovering/Resolving]
  - Rash pruritic [Recovering/Resolving]
  - Swelling face [Recovered/Resolved]
  - Oedema peripheral [Not Recovered/Not Resolved]
  - Skin lesion [Recovering/Resolving]
  - Erythema [Recovering/Resolving]
  - Rash maculo-papular [Not Recovered/Not Resolved]
  - Oedema [Recovering/Resolving]
  - Skin exfoliation [Recovering/Resolving]
  - Skin burning sensation [Recovered/Resolved]
  - Arteriosclerosis [Recovering/Resolving]
  - Polyuria [Unknown]
  - Dermatophytosis of nail [Unknown]

NARRATIVE: CASE EVENT DATE: 20250701
